FAERS Safety Report 10430056 (Version 4)
Quarter: 2015Q1

REPORT INFORMATION
  Report Type: Report from Study
  Country: US (occurrence: US)
  Receive Date: 20140904
  Receipt Date: 20150209
  Transmission Date: 20150720
  Serious: Yes (Other)
  Sender: FDA-Public Use
  Company Number: US-ALEXION-A201403306

PATIENT

DRUGS (1)
  1. SOLIRIS [Suspect]
     Active Substance: ECULIZUMAB
     Indication: PAROXYSMAL NOCTURNAL HAEMOGLOBINURIA
     Dosage: UNK
     Route: 042

REACTIONS (6)
  - Haemoglobin abnormal [Unknown]
  - Blood product transfusion dependent [Unknown]
  - Myelofibrosis [Unknown]
  - Serum ferritin increased [Unknown]
  - Blood iron increased [Unknown]
  - Blood lactate dehydrogenase abnormal [Unknown]
